FAERS Safety Report 10314877 (Version 1)
Quarter: 2014Q3

REPORT INFORMATION
  Report Type: Spontaneous
  Country: DE (occurrence: DE)
  Receive Date: 20140718
  Receipt Date: 20140718
  Transmission Date: 20150326
  Serious: Yes (Congenital Anomaly, Other)
  Sender: FDA-Public Use
  Company Number: DE-ABBVIE-14P-062-1258424-00

PATIENT
  Sex: Male

DRUGS (7)
  1. HUMIRA [Suspect]
     Active Substance: ADALIMUMAB
     Indication: MATERNAL EXPOSURE TIMING UNSPECIFIED
     Route: 064
  2. VENLAFAXINE [Suspect]
     Active Substance: VENLAFAXINE HYDROCHLORIDE
     Indication: MATERNAL EXPOSURE TIMING UNSPECIFIED
     Route: 064
  3. METHOTREXATE [Suspect]
     Active Substance: METHOTREXATE
     Indication: MATERNAL EXPOSURE TIMING UNSPECIFIED
     Route: 064
  4. INFLIXIMAB [Suspect]
     Active Substance: INFLIXIMAB
     Indication: MATERNAL EXPOSURE TIMING UNSPECIFIED
     Route: 064
  5. BETAMETASONE (CELESTAN) [Suspect]
     Active Substance: BETAMETHASONE
     Indication: MATERNAL EXPOSURE TIMING UNSPECIFIED
     Route: 064
  6. PALLADON [Suspect]
     Active Substance: HYDROMORPHONE
     Indication: MATERNAL EXPOSURE TIMING UNSPECIFIED
     Route: 064
  7. PETHIDINE [Suspect]
     Active Substance: MEPERIDINE
     Indication: MATERNAL EXPOSURE TIMING UNSPECIFIED
     Route: 064

REACTIONS (16)
  - Pulmonary haemorrhage [Recovering/Resolving]
  - Patent ductus arteriosus [Recovering/Resolving]
  - Ventricular septal defect [Not Recovered/Not Resolved]
  - Hypotonia neonatal [Unknown]
  - Chromosomal deletion [Not Recovered/Not Resolved]
  - Hypertelorism of orbit [Unknown]
  - Eyelid ptosis congenital [Unknown]
  - Pyelocaliectasis [Not Recovered/Not Resolved]
  - Caesarean section [None]
  - Low set ears [Unknown]
  - Foetal exposure during pregnancy [Unknown]
  - Dysmorphism [Not Recovered/Not Resolved]
  - Premature baby [Unknown]
  - Atrial septal defect [Unknown]
  - Factor I deficiency [Recovered/Resolved]
  - Delayed fontanelle closure [Unknown]

NARRATIVE: CASE EVENT DATE: 20130121
